FAERS Safety Report 26011848 (Version 2)
Quarter: 2025Q4

REPORT INFORMATION
  Report Type: Spontaneous
  Country: CA (occurrence: CA)
  Receive Date: 20251107
  Receipt Date: 20251107
  Transmission Date: 20260117
  Serious: Yes (Other)
  Sender: PFIZER
  Company Number: CA-PFIZER INC-202500094438

PATIENT
  Age: 62 Year
  Sex: Female
  Weight: 72.9 kg

DRUGS (4)
  1. IXIFI [Suspect]
     Active Substance: INFLIXIMAB-QBTX
     Indication: Crohn^s disease
     Dosage: 400 MG, EVERY 8 WEEKS
     Route: 042
     Dates: start: 20250715
  2. IXIFI [Suspect]
     Active Substance: INFLIXIMAB-QBTX
     Dosage: 10 MG/KG EVERY 8 WEEKS
     Route: 042
  3. IXIFI [Suspect]
     Active Substance: INFLIXIMAB-QBTX
     Dosage: 10 MG/KG EVERY 8 WEEKS
     Route: 042
     Dates: start: 20250909
  4. IXIFI [Suspect]
     Active Substance: INFLIXIMAB-QBTX
     Dosage: 10 MG/KG EVERY 8 WEEKS
     Route: 042
     Dates: start: 20251103

REACTIONS (4)
  - Intestinal resection [Recovered/Resolved]
  - Hypertension [Unknown]
  - Micturition urgency [Unknown]
  - Incisional hernia [Recovered/Resolved]

NARRATIVE: CASE EVENT DATE: 20250101
